FAERS Safety Report 25683051 (Version 1)
Quarter: 2025Q3

REPORT INFORMATION
  Report Type: Spontaneous
  Country: US (occurrence: US)
  Receive Date: 20250814
  Receipt Date: 20250814
  Transmission Date: 20251020
  Serious: No
  Sender: ORASIS PHARMACEUTICALS
  Company Number: US-ORASIS PHARMACEUTIALS-2025ORA00040

PATIENT
  Age: 66 Year
  Sex: Male

DRUGS (1)
  1. QLOSI [Suspect]
     Active Substance: PILOCARPINE HYDROCHLORIDE

REACTIONS (1)
  - Vitreous detachment [Unknown]
